FAERS Safety Report 17146181 (Version 2)
Quarter: 2021Q3

REPORT INFORMATION
  Report Type: Spontaneous
  Country: US (occurrence: US)
  Receive Date: 20191212
  Receipt Date: 20210712
  Transmission Date: 20211014
  Serious: Yes (Disabling)
  Sender: FDA-Public Use
  Company Number: US-TEVA-2019-US-1151155

PATIENT
  Age: 56 Year
  Sex: Female
  Weight: 86.26 kg

DRUGS (7)
  1. TAXOTERE [Suspect]
     Active Substance: DOCETAXEL
     Indication: BREAST CANCER FEMALE
     Dosage: NO OF CYCLES: 04, FREQUENCY: EVERY THREE WEEKS
     Route: 065
     Dates: start: 20160506, end: 20160707
  2. DOCETAXEL. [Suspect]
     Active Substance: DOCETAXEL
     Indication: BREAST CANCER FEMALE
     Dosage: DOSAGE: 140 MG, NO OF CYCLES: 04, FREQUENCY: EVERY THREE WEEKS
     Route: 065
     Dates: start: 20160506, end: 20160707
  3. CARVEDILOL. [Concomitant]
     Active Substance: CARVEDILOL
     Dosage: ONGOING
     Route: 065
     Dates: start: 20130101
  4. CYCLOPHOSPHAMIDE. [Concomitant]
     Active Substance: CYCLOPHOSPHAMIDE
     Indication: BREAST CANCER FEMALE
     Route: 065
  5. LISINOPRIL. [Concomitant]
     Active Substance: LISINOPRIL
     Dosage: ONGOING
     Route: 065
     Dates: start: 20130101
  6. PRAVASTATIN. [Concomitant]
     Active Substance: PRAVASTATIN
     Dosage: ONGOING
     Route: 065
     Dates: start: 20130101
  7. WARFARIN [Concomitant]
     Active Substance: WARFARIN
     Dosage: ONGOING
     Route: 065
     Dates: start: 20130101

REACTIONS (4)
  - Alopecia totalis [Not Recovered/Not Resolved]
  - Madarosis [Not Recovered/Not Resolved]
  - Hair texture abnormal [Not Recovered/Not Resolved]
  - Hair colour changes [Not Recovered/Not Resolved]

NARRATIVE: CASE EVENT DATE: 20210516
